FAERS Safety Report 9432226 (Version 1)
Quarter: 2013Q3

REPORT INFORMATION
  Report Type: Spontaneous
  Country: CH (occurrence: CH)
  Receive Date: 20130731
  Receipt Date: 20130731
  Transmission Date: 20140515
  Serious: Yes (Other)
  Sender: FDA-Public Use
  Company Number: PHHY2013CH079114

PATIENT
  Sex: Female

DRUGS (3)
  1. GILENYA [Suspect]
     Dosage: 0.5 MG, UNK
     Route: 048
     Dates: start: 20130624, end: 20130625
  2. SIRDALUD [Concomitant]
     Indication: MUSCLE SPASTICITY
     Dosage: 2 MG, UNK
     Route: 048
  3. ATARAX [Concomitant]
     Indication: PRURITUS
     Dosage: 25 MG, UNK
     Route: 048

REACTIONS (3)
  - Optic ischaemic neuropathy [Not Recovered/Not Resolved]
  - Blindness [Not Recovered/Not Resolved]
  - Encephalomyelitis [Not Recovered/Not Resolved]
